FAERS Safety Report 9094605 (Version 2)
Quarter: 2013Q2

REPORT INFORMATION
  Report Type: Spontaneous
  Country: DE (occurrence: DE)
  Receive Date: 20130204
  Receipt Date: 20130419
  Transmission Date: 20140414
  Serious: Yes (Hospitalization)
  Sender: FDA-Public Use
  Company Number: DE-AMGEN-DEUSP2013006986

PATIENT
  Age: 49 Year
  Sex: Male

DRUGS (3)
  1. ENBREL [Suspect]
     Indication: RHEUMATOID ARTHRITIS
     Dosage: 25 MG, 2X/WEEK
     Dates: start: 20090918, end: 20120930
  2. ENBREL [Suspect]
     Dosage: UNK MG, UNK
  3. CORTISONE [Concomitant]
     Dosage: UNK

REACTIONS (2)
  - Varicose vein [Unknown]
  - Drug effect decreased [Not Recovered/Not Resolved]
